FAERS Safety Report 7209292-7 (Version None)
Quarter: 2011Q1

REPORT INFORMATION
  Report Type: 
  Country: None (occurrence: None)
  Receive Date: 20110104
  Receipt Date: 20101229
  Transmission Date: 20110831
  Serious: Yes (Hospitalization)
  Sender: FDA-Public Use
  Company Number: B0691914A

PATIENT
  Age: 5 Year
  Sex: Female

DRUGS (1)
  1. AUGMENTIN '125' [Suspect]
     Indication: TONSILLITIS
     Dosage: 9ML PER DAY
     Route: 065

REACTIONS (2)
  - ACCIDENTAL OVERDOSE [None]
  - VOMITING [None]
